FAERS Safety Report 14384649 (Version 1)
Quarter: 2018Q1

REPORT INFORMATION
  Report Type: Spontaneous
  Country: US (occurrence: FR)
  Receive Date: 20180115
  Receipt Date: 20180115
  Transmission Date: 20180509
  Serious: Yes (Other)
  Sender: FDA-Public Use
  Company Number: US-SUNOVION-2018SUN000059

PATIENT

DRUGS (1)
  1. INDACATEROL [Suspect]
     Active Substance: INDACATEROL
     Indication: CHRONIC OBSTRUCTIVE PULMONARY DISEASE
     Dosage: 300 ?G, UNK (REGIMEN #1)
     Route: 055

REACTIONS (4)
  - Polymyalgia rheumatica [Unknown]
  - Autoimmune disorder [Unknown]
  - Arthralgia [Recovering/Resolving]
  - Peripheral swelling [Recovering/Resolving]
